FAERS Safety Report 15007752 (Version 1)
Quarter: 2018Q2

REPORT INFORMATION
  Report Type: Spontaneous
  Country: DE (occurrence: DE)
  Receive Date: 20180613
  Receipt Date: 20180613
  Transmission Date: 20180711
  Serious: Yes (Life-Threatening, Hospitalization)
  Sender: FDA-Public Use
  Company Number: DE-MYLANLABS-2018M1038860

PATIENT
  Age: 84 Year
  Sex: Female
  Weight: 53 kg

DRUGS (2)
  1. PREDNISOLON                        /00016201/ [Suspect]
     Active Substance: PREDNISOLONE
     Indication: AUTOIMMUNE HAEMOLYTIC ANAEMIA
     Dosage: 5-15MG
     Route: 048
  2. AZATHIOPRINE. [Suspect]
     Active Substance: AZATHIOPRINE
     Indication: AUTOIMMUNE HAEMOLYTIC ANAEMIA
     Dosage: 100 MG, UNK
     Route: 048

REACTIONS (3)
  - Acute kidney injury [Recovered/Resolved]
  - Gastroenteritis [Recovered/Resolved]
  - Urosepsis [Recovered/Resolved]

NARRATIVE: CASE EVENT DATE: 20180215
